FAERS Safety Report 8775800 (Version 1)
Quarter: 2012Q4

REPORT INFORMATION
  Report Type: 
  Country: US (occurrence: US)
  Receive Date: 20120910
  Receipt Date: 20120910
  Transmission Date: 20130627
  Serious: Yes (Other)
  Sender: FDA-Public Use
  Company Number: US-PFIZER INC-2012220101

PATIENT
  Age: 57 Year
  Sex: Male

DRUGS (1)
  1. CLADRIBINE [Suspect]
     Indication: HAIRY CELL LEUKAEMIA

REACTIONS (3)
  - Second primary malignancy [Unknown]
  - T-cell type acute leukaemia [Unknown]
  - Myelodysplastic syndrome [Unknown]
